FAERS Safety Report 17571476 (Version 1)
Quarter: 2020Q1

REPORT INFORMATION
  Report Type: Report from Study
  Country: DE (occurrence: DE)
  Receive Date: 20200323
  Receipt Date: 20200323
  Transmission Date: 20200409
  Serious: Yes (Other)
  Sender: FDA-Public Use
  Company Number: NVSC2020DE076574

PATIENT

DRUGS (4)
  1. BLINDED AIN457 [Suspect]
     Active Substance: SECUKINUMAB
     Indication: HIDRADENITIS
     Dosage: CODE NOT BROKEN
     Route: 058
  2. BLINDED PLACEBO [Suspect]
     Active Substance: INVESTIGATIONAL PRODUCT
     Indication: HIDRADENITIS
     Dosage: CODE NOT BROKEN
     Route: 058
  3. BLINDED AIN457 [Suspect]
     Active Substance: SECUKINUMAB
     Indication: HIDRADENITIS
     Dosage: CODE NOT BROKEN
     Route: 058
  4. BLINDED NO TREATMENT RECEIVED [Suspect]
     Active Substance: INVESTIGATIONAL PRODUCT
     Indication: HIDRADENITIS
     Dosage: CODE NOT BROKEN
     Route: 058

REACTIONS (1)
  - Intervertebral disc protrusion [Unknown]
